FAERS Safety Report 5278698-8 (Version None)
Quarter: 2007Q1

REPORT INFORMATION
  Report Type: 
  Country: None (occurrence: None)
  Receive Date: 20070321
  Receipt Date: 20070308
  Transmission Date: 20070707
  Serious: Yes (Death)
  Sender: FDA-Public Use
  Company Number: A-CH2007-14519

PATIENT
  Age: 15 Year
  Sex: Female
  Weight: 40 kg

DRUGS (3)
  1. TRACLEER [Suspect]
     Indication: PULMONARY HYPERTENSION
     Dosage: 62.5 MG, BID, ORAL
     Route: 048
  2. SILDENAFIL CITRATE [Concomitant]
  3. ASPIRIN [Concomitant]

REACTIONS (5)
  - CARDIAC DISORDER [None]
  - CEREBRAL HAEMORRHAGE [None]
  - ENDOCARDITIS [None]
  - INTRACRANIAL PRESSURE INCREASED [None]
  - SEPTIC EMBOLUS [None]
